FAERS Safety Report 18656614 (Version 5)
Quarter: 2021Q2

REPORT INFORMATION
  Report Type: Spontaneous
  Country: US (occurrence: US)
  Receive Date: 20201224
  Receipt Date: 20210625
  Transmission Date: 20210717
  Serious: Yes (Hospitalization, Other)
  Sender: FDA-Public Use
  Company Number: US-PFIZER INC-2020505905

PATIENT
  Age: 76 Year
  Sex: Male

DRUGS (2)
  1. LYRICA [Suspect]
     Active Substance: PREGABALIN
     Dosage: 75 MG
  2. VALIUM [Concomitant]
     Active Substance: DIAZEPAM
     Dosage: UNK

REACTIONS (11)
  - Loss of personal independence in daily activities [Unknown]
  - Dyspnoea [Unknown]
  - Discomfort [Unknown]
  - Bradyphrenia [Unknown]
  - Malaise [Unknown]
  - Coronavirus infection [Unknown]
  - Dysphagia [Unknown]
  - Pain [Unknown]
  - Coronary artery occlusion [Unknown]
  - Speech disorder [Unknown]
  - Illness [Unknown]
